FAERS Safety Report 6417162-7 (Version None)
Quarter: 2009Q4

REPORT INFORMATION
  Report Type: 
  Country: None (occurrence: None)
  Receive Date: 20091028
  Receipt Date: 20090908
  Transmission Date: 20100525
  Serious: Yes (Death, Hospitalization, Other)
  Sender: FDA-Public Use
  Company Number: JP-JNJFOC-20090700844

PATIENT
  Sex: Female

DRUGS (1)
  1. DOXORUBICIN HCL [Suspect]
     Indication: OVARIAN CANCER RECURRENT
     Route: 042

REACTIONS (6)
  - GRAND MAL CONVULSION [None]
  - MULTI-ORGAN FAILURE [None]
  - OVARIAN CANCER [None]
  - PNEUMOTHORAX [None]
  - RADIATION SKIN INJURY [None]
  - SMALL INTESTINAL PERFORATION [None]
